FAERS Safety Report 7980602-6 (Version None)
Quarter: 2011Q4

REPORT INFORMATION
  Report Type: 
  Country: None (occurrence: None)
  Receive Date: 20111214
  Receipt Date: 20111130
  Transmission Date: 20120403
  Serious: Yes (Life-Threatening, Other)
  Sender: FDA-Public Use
  Company Number: ES-CELGENEUS-144-50794-11114102

PATIENT
  Sex: Female
  Weight: 58 kg

DRUGS (1)
  1. VIDAZA [Suspect]
     Route: 065
     Dates: start: 20080212, end: 20080220

REACTIONS (1)
  - THROMBOCYTOPENIA [None]
